FAERS Safety Report 6593152-9 (Version None)
Quarter: 2010Q1

REPORT INFORMATION
  Report Type: 
  Country: None (occurrence: None)
  Receive Date: 20100222
  Receipt Date: 20100209
  Transmission Date: 20100710
  Serious: Yes (Hospitalization, Other)
  Sender: FDA-Public Use
  Company Number: PHHY2009JP48547

PATIENT
  Sex: Female
  Weight: 56 kg

DRUGS (8)
  1. TEGRETOL [Suspect]
     Indication: BLEPHAROSPASM
     Dosage: 100 MG, DAILY
     Route: 048
     Dates: start: 20080101
  2. TEGRETOL [Suspect]
     Dosage: 200 MG, BID
     Route: 048
     Dates: start: 20080219, end: 20080301
  3. LOXONIN [Concomitant]
     Indication: HYPOAESTHESIA
     Dosage: 03 DF, UNK
     Route: 048
     Dates: start: 20080301, end: 20080410
  4. METHYCOBAL [Concomitant]
     Indication: HYPOAESTHESIA
     Dosage: 03 DF, UNK
     Route: 048
     Dates: start: 20080301, end: 20080410
  5. FLOMOX [Concomitant]
     Indication: PYREXIA
     Dosage: 300 MG, UNK
     Route: 048
     Dates: start: 20080301, end: 20080410
  6. ZESULAN [Concomitant]
     Indication: PYREXIA
     Dosage: 03 DF, UNK
     Route: 048
     Dates: start: 20080301, end: 20080410
  7. PROMAC [Concomitant]
     Indication: PYREXIA
     Dosage: 02 DF, UNK
     Route: 048
  8. ATARAX [Concomitant]
     Indication: PYREXIA
     Dosage: 01 DF, UNK
     Route: 048
     Dates: start: 20080301, end: 20080410

REACTIONS (10)
  - ALANINE AMINOTRANSFERASE INCREASED [None]
  - DRUG ERUPTION [None]
  - DRUG RASH WITH EOSINOPHILIA AND SYSTEMIC SYMPTOMS [None]
  - GAMMA-GLUTAMYLTRANSFERASE INCREASED [None]
  - LIVER DISORDER [None]
  - LYMPHADENOPATHY [None]
  - LYMPHOCYTE STIMULATION TEST POSITIVE [None]
  - ORAL MUCOSA EROSION [None]
  - PYREXIA [None]
  - RASH [None]
